FAERS Safety Report 20102069 (Version 1)
Quarter: 2021Q4

REPORT INFORMATION
  Report Type: Spontaneous
  Country: CA (occurrence: None)
  Receive Date: 20211123
  Receipt Date: 20211123
  Transmission Date: 20220303
  Serious: Yes (Other)
  Sender: FDA-Public Use
  Company Number: CA-ROCHE-2960257

PATIENT
  Sex: Male
  Weight: 71 kg

DRUGS (1)
  1. RITUXIMAB [Suspect]
     Active Substance: RITUXIMAB
     Indication: Granulomatosis with polyangiitis
     Route: 041

REACTIONS (3)
  - Osteomyelitis [Unknown]
  - Weight decreased [Unknown]
  - Weight increased [Unknown]
